FAERS Safety Report 24728334 (Version 3)
Quarter: 2025Q1

REPORT INFORMATION
  Report Type: Spontaneous
  Country: US (occurrence: US)
  Receive Date: 20241212
  Receipt Date: 20250210
  Transmission Date: 20250409
  Serious: No
  Sender: JOHNSON AND JOHNSON
  Company Number: US-JNJFOC-20241229366

PATIENT
  Age: 66 Year
  Sex: Female

DRUGS (1)
  1. SIMPONI [Suspect]
     Active Substance: GOLIMUMAB
     Indication: Ankylosing spondylitis
     Dosage: STRENGTH:50.00 MG / 0.50 ML
     Route: 058

REACTIONS (2)
  - Accidental exposure to product [Unknown]
  - Device deployment issue [Unknown]

NARRATIVE: CASE EVENT DATE: 20241207
